FAERS Safety Report 6621497-2 (Version None)
Quarter: 2010Q1

REPORT INFORMATION
  Report Type: 
  Country: None (occurrence: None)
  Receive Date: 20100309
  Receipt Date: 20100226
  Transmission Date: 20100710
  Serious: Yes (Other)
  Sender: FDA-Public Use
  Company Number: US-TYCO HEALTHCARE/MALLINCKRODT-T200901377

PATIENT
  Sex: Male
  Weight: 118.59 kg

DRUGS (7)
  1. OPTIMARK [Suspect]
     Indication: NUCLEAR MAGNETIC RESONANCE IMAGING BRAIN
     Dosage: 20 ML, SINGLE
     Dates: start: 20030403, end: 20030403
  2. GADOLINIUM [Suspect]
     Indication: NUCLEAR MAGNETIC RESONANCE IMAGING BRAIN
     Dosage: UNK, SINGLE
     Dates: start: 20030410, end: 20030410
  3. GADOLINIUM [Suspect]
     Dosage: UNK, SINGLE
     Dates: start: 20031001, end: 20031001
  4. OMNISCAN [Suspect]
     Indication: NUCLEAR MAGNETIC RESONANCE IMAGING
     Dosage: 20 ML, SINGLE
     Dates: start: 20030411, end: 20030411
  5. MAGNEVIST [Suspect]
     Indication: NUCLEAR MAGNETIC RESONANCE IMAGING BRAIN
     Dosage: 20 ML, SINGLE
     Route: 042
     Dates: start: 20040527, end: 20040527
  6. LOTENSIN HCT [Concomitant]
     Dosage: UNK
     Dates: start: 19980101, end: 20050101
  7. CODEINE SULFATE [Concomitant]

REACTIONS (20)
  - ACTIVITIES OF DAILY LIVING IMPAIRED [None]
  - CARDIAC FAILURE CONGESTIVE [None]
  - CHOLELITHIASIS [None]
  - COUGH [None]
  - DYSARTHRIA [None]
  - DYSLIPIDAEMIA [None]
  - HEADACHE [None]
  - HEPATIC CIRRHOSIS [None]
  - HYPOTHYROIDISM [None]
  - MALIGNANT HYPERTENSION [None]
  - NEPHROGENIC SYSTEMIC FIBROSIS [None]
  - NIGHT SWEATS [None]
  - OEDEMA PERIPHERAL [None]
  - RENAL CYST [None]
  - RENAL FAILURE ACUTE [None]
  - SENSORY LOSS [None]
  - SPLENOMEGALY [None]
  - THROMBOCYTOPENIA [None]
  - TINNITUS [None]
  - VISION BLURRED [None]
